FAERS Safety Report 11524761 (Version 2)
Quarter: 2015Q4

REPORT INFORMATION
  Report Type: Report from Study
  Country: CA (occurrence: CA)
  Receive Date: 20150918
  Receipt Date: 20151016
  Transmission Date: 20160304
  Serious: Yes (Hospitalization, Other)
  Sender: FDA-Public Use
  Company Number: CA-ABBVIE-15K-028-1463793-00

PATIENT
  Age: 30 Year
  Sex: Female
  Weight: 64.92 kg

DRUGS (1)
  1. HUMIRA [Suspect]
     Active Substance: ADALIMUMAB
     Indication: CROHN^S DISEASE
     Route: 058
     Dates: start: 20121122

REACTIONS (3)
  - Polyp [Unknown]
  - Intestinal polyp [Recovered/Resolved]
  - Post procedural haemorrhage [Recovered/Resolved]

NARRATIVE: CASE EVENT DATE: 20150902
